FAERS Safety Report 4299437-3 (Version None)
Quarter: 2004Q1

REPORT INFORMATION
  Report Type: 
  Country: None (occurrence: None)
  Receive Date: 20040219
  Receipt Date: 20031208
  Transmission Date: 20041129
  Serious: Yes (Hospitalization)
  Sender: FDA-Public Use
  Company Number: US-ROCHE-353816

PATIENT
  Age: 52 Year
  Sex: Male
  Weight: 66.7 kg

DRUGS (6)
  1. PEGASYS [Suspect]
     Indication: HEPATITIS C
     Dosage: TAKEN EVERY WEEK
     Route: 058
     Dates: start: 20031023, end: 20031122
  2. COPEGUS [Suspect]
     Indication: HEPATITIS C
     Dosage: DOSAGE REGIMEN REPORTED AS 2 AM AND 3PM
     Route: 048
     Dates: start: 20031023, end: 20031122
  3. COMBIVIR [Concomitant]
     Indication: HIV INFECTION
     Route: 065
     Dates: end: 20031122
  4. SUSTIVA [Concomitant]
     Indication: HIV INFECTION
     Route: 065
     Dates: end: 20031122
  5. HYDROCHLOROTHIAZIDE [Concomitant]
     Dosage: TAKEN EVERY DAY
     Route: 048
     Dates: end: 20031122
  6. GLUCOPHAGE [Concomitant]

REACTIONS (4)
  - DIVERTICULITIS [None]
  - DIVERTICULUM [None]
  - FOOD POISONING [None]
  - LARGE INTESTINE PERFORATION [None]
